FAERS Safety Report 5961963-6 (Version None)
Quarter: 2008Q4

REPORT INFORMATION
  Report Type: 
  Country: None (occurrence: None)
  Receive Date: 20081121
  Receipt Date: 20081113
  Transmission Date: 20090506
  Serious: Yes (Other)
  Sender: FDA-Public Use
  Company Number: CH-WYE-H06901908

PATIENT
  Age: 70 Year
  Sex: Male

DRUGS (11)
  1. CORDARONE [Suspect]
     Indication: ATRIAL FIBRILLATION
     Route: 048
     Dates: start: 20081004, end: 20081019
  2. CORDARONE [Interacting]
     Indication: ATRIAL FLUTTER
     Route: 048
     Dates: start: 20081020
  3. ZOLOFT [Interacting]
     Indication: DEPRESSION
     Route: 048
     Dates: start: 20081010
  4. AMLODIPINE [Concomitant]
     Dosage: 10 MG
     Route: 048
     Dates: start: 20081004
  5. TORSEMIDE [Concomitant]
     Dosage: 5 MG
     Route: 048
  6. METOPROLOL TARTRATE [Concomitant]
     Dosage: 100 MG
     Route: 048
     Dates: start: 20081016
  7. MICARDIS [Concomitant]
     Dosage: 80 MG
     Route: 048
  8. ESIDRIX [Concomitant]
     Dosage: 25 MG
     Route: 048
     Dates: start: 20081017
  9. SINTROM [Interacting]
     Indication: ATRIAL FIBRILLATION
     Dosage: UNKNOWN
     Route: 048
     Dates: start: 20081015, end: 20081019
  10. SINTROM [Interacting]
     Indication: ATRIAL FLUTTER
     Dosage: UNKNOWN
     Route: 048
     Dates: start: 20081020
  11. METFORMIN HCL [Concomitant]
     Dosage: 1500 MG
     Route: 048

REACTIONS (2)
  - DRUG INTERACTION [None]
  - INTERNATIONAL NORMALISED RATIO INCREASED [None]
